FAERS Safety Report 17442475 (Version 1)
Quarter: 2020Q1

REPORT INFORMATION
  Report Type: Spontaneous
  Country: US (occurrence: US)
  Receive Date: 20200220
  Receipt Date: 20200220
  Transmission Date: 20200409
  Serious: Yes (Other)
  Sender: FDA-Public Use
  Company Number: US-PFM-2020-01893

PATIENT
  Age: 4 Year
  Sex: Female

DRUGS (2)
  1. PROPRANOLOL [Suspect]
     Active Substance: PROPRANOLOL HYDROCHLORIDE
     Indication: OFF LABEL USE
  2. PROPRANOLOL [Suspect]
     Active Substance: PROPRANOLOL HYDROCHLORIDE
     Indication: HAEMANGIOMA CONGENITAL
     Dosage: 0.9 MG/KG, BID (2/DAY)

REACTIONS (9)
  - Mental status changes [Recovered/Resolved]
  - Feeling hot [Recovered/Resolved]
  - Sinus bradycardia [Recovered/Resolved]
  - Product administered to patient of inappropriate age [Unknown]
  - Generalised tonic-clonic seizure [Recovered/Resolved]
  - Off label use [Unknown]
  - Unresponsive to stimuli [Recovered/Resolved]
  - Product use in unapproved indication [Unknown]
  - Incorrect product administration duration [Unknown]
